FAERS Safety Report 17802337 (Version 1)
Quarter: 2020Q2

REPORT INFORMATION
  Report Type: Spontaneous
  Country: US (occurrence: US)
  Receive Date: 20200519
  Receipt Date: 20200519
  Transmission Date: 20200714
  Serious: No
  Sender: FDA-Public Use
  Company Number: US-NOVEN PHARMACEUTICALS, INC.-US2019000188

PATIENT

DRUGS (3)
  1. DAYTRANA [Suspect]
     Active Substance: METHYLPHENIDATE
     Indication: ATTENTION DEFICIT HYPERACTIVITY DISORDER
     Dosage: 10 MG, 10 HOURS DAILY
     Route: 062
     Dates: start: 2019, end: 201903
  2. DAYTRANA [Suspect]
     Active Substance: METHYLPHENIDATE
     Dosage: 20 MG, 10 HOURS DAILY
     Route: 062
     Dates: start: 201903, end: 201904
  3. DAYTRANA [Suspect]
     Active Substance: METHYLPHENIDATE
     Dosage: 10 MG, 10 HOURS DAILY
     Route: 062
     Dates: start: 201904

REACTIONS (5)
  - Abnormal behaviour [Unknown]
  - Loss of personal independence in daily activities [Recovered/Resolved]
  - Incorrect product administration duration [Not Recovered/Not Resolved]
  - Therapy cessation [Recovered/Resolved]
  - Tic [Recovered/Resolved]

NARRATIVE: CASE EVENT DATE: 2019
